FAERS Safety Report 8544120-9 (Version None)
Quarter: 2012Q3

REPORT INFORMATION
  Report Type: 
  Country: None (occurrence: None)
  Receive Date: 20120727
  Receipt Date: 20120723
  Transmission Date: 20120928
  Serious: No
  Sender: FDA-Public Use
  Company Number: US-B.I. PHARMACEUTICALS,INC./RIDGEFIELD-2012-BP-16338BP

PATIENT
  Age: 81 Year
  Sex: Male

DRUGS (12)
  1. SPIRIVA [Suspect]
     Indication: COUGH
     Dosage: 18 MCG
     Route: 055
     Dates: start: 20120720
  2. ASPIRIN [Concomitant]
     Indication: ROUTINE HEALTH MAINTENANCE
  3. LOVASTATIN [Concomitant]
     Indication: BLOOD CHOLESTEROL INCREASED
  4. CARVEDILOL [Concomitant]
     Indication: ATRIAL FIBRILLATION
  5. DIGOXIN [Concomitant]
     Indication: ATRIAL FIBRILLATION
  6. PACERONE [Concomitant]
     Indication: ATRIAL FIBRILLATION
  7. LEVOTHYROXINE SODIUM [Concomitant]
     Indication: HYPOTHYROIDISM
  8. ISOSORBIDE [Concomitant]
  9. LISINOPRIL [Concomitant]
     Indication: HYPERTENSION
  10. SPIRIVA [Suspect]
     Indication: LUNG DISORDER
  11. ALLOPURINOL [Concomitant]
     Indication: GOUT
  12. NIACIN [Concomitant]
     Indication: ROUTINE HEALTH MAINTENANCE

REACTIONS (2)
  - DYSPNOEA [None]
  - DIZZINESS [None]
